FAERS Safety Report 9242941 (Version 5)
Quarter: 2014Q2

REPORT INFORMATION
  Report Type: Spontaneous
  Country: US (occurrence: US)
  Receive Date: 20130419
  Receipt Date: 20140417
  Transmission Date: 20141212
  Serious: Yes (Hospitalization, Other)
  Sender: FDA-Public Use
  Company Number: US-009507513-1304USA005351

PATIENT
  Sex: Female
  Weight: 81.18 kg

DRUGS (3)
  1. FOSAMAX [Suspect]
     Indication: OSTEOPOROSIS
     Dosage: 10 MG, QD
     Route: 048
     Dates: start: 1996
  2. FOSAMAX [Suspect]
     Dosage: 70 MG, QW
     Route: 048
  3. ALENDRONATE SODIUM [Suspect]
     Indication: OSTEOPOROSIS
     Dosage: 70 MG, QW

REACTIONS (44)
  - Femur fracture [Unknown]
  - Closed fracture manipulation [Unknown]
  - Knee arthroplasty [Unknown]
  - Knee arthroplasty [Unknown]
  - Knee arthroplasty [Unknown]
  - Bursitis [Unknown]
  - Medical device removal [Unknown]
  - Device failure [Unknown]
  - Osteoarthritis [Unknown]
  - Compression fracture [Unknown]
  - Angiodysplasia [Unknown]
  - Polyp [Unknown]
  - Tonsillectomy [Unknown]
  - Synovial cyst [Unknown]
  - Joint surgery [Unknown]
  - Hypertension [Unknown]
  - Hyperlipidaemia [Unknown]
  - Spinal column stenosis [Unknown]
  - Hyponatraemia [Unknown]
  - Fatigue [Unknown]
  - Intervertebral disc protrusion [Unknown]
  - Limb asymmetry [Unknown]
  - Scoliosis [Unknown]
  - Bursitis [Unknown]
  - Pain [Unknown]
  - Arthritis [Unknown]
  - Iliotibial band syndrome [Unknown]
  - Temporal arteritis [Unknown]
  - Retinopathy [Not Recovered/Not Resolved]
  - Anxiety [Unknown]
  - Osteoarthritis [Unknown]
  - Osteopenia [Unknown]
  - Treatment failure [Unknown]
  - Asthenia [Unknown]
  - Drug ineffective [Unknown]
  - Dyspepsia [Unknown]
  - Gastrooesophageal reflux disease [Unknown]
  - Neck pain [Unknown]
  - Headache [Not Recovered/Not Resolved]
  - Carpal tunnel syndrome [Unknown]
  - Spinal osteoarthritis [Unknown]
  - Kyphosis [Unknown]
  - Back pain [Unknown]
  - Drug ineffective [Unknown]
